FAERS Safety Report 8515590-7 (Version None)
Quarter: 2012Q3

REPORT INFORMATION
  Report Type: 
  Country: None (occurrence: None)
  Receive Date: 20120717
  Receipt Date: 20120710
  Transmission Date: 20120928
  Serious: Yes (Hospitalization)
  Sender: FDA-Public Use
  Company Number: PHHY2012NO059805

PATIENT
  Sex: Female
  Weight: 65 kg

DRUGS (1)
  1. VOLTAREN [Suspect]
     Indication: MYALGIA

REACTIONS (11)
  - SKIN WARM [None]
  - LYMPH NODE PALPABLE [None]
  - HYPERSENSITIVITY [None]
  - DEHYDRATION [None]
  - ERYTHEMA [None]
  - RASH [None]
  - EYE SWELLING [None]
  - BLOOD CHOLESTEROL INCREASED [None]
  - LOCAL SWELLING [None]
  - SWELLING FACE [None]
  - DRY SKIN [None]
